FAERS Safety Report 7122075-1 (Version None)
Quarter: 2010Q4

REPORT INFORMATION
  Report Type: 
  Country: None (occurrence: None)
  Receive Date: 20101124
  Receipt Date: 20101115
  Transmission Date: 20110411
  Serious: Yes (Hospitalization)
  Sender: FDA-Public Use
  Company Number: AU-ENDO PHARMACEUTICALS INC.-MSER20100032

PATIENT
  Age: 63 Year
  Sex: Male

DRUGS (12)
  1. MORPHINE SULFATE [Suspect]
     Indication: PAIN
     Dosage: UNKNOWN
     Route: 058
     Dates: start: 20080502, end: 20080503
  2. MORPHINE SULFATE [Suspect]
     Dosage: UNKNOWN
     Route: 048
     Dates: start: 20080503, end: 20080513
  3. SUNITINIB MALATE [Suspect]
     Indication: THYROID CANCER
     Dosage: 50 MG ALTERNATING WITH 37.5 MG
     Route: 048
     Dates: start: 20050308
  4. SUNITINIB MALATE [Suspect]
     Dosage: 50 MG ALTERNATING WITH 37.5 MG
     Route: 048
  5. BACTRIM [Suspect]
     Dosage: UNKNOWN
     Route: 065
  6. LEVOTHYROXINE SODIUM [Concomitant]
     Dosage: UNKNOWN
     Route: 065
     Dates: start: 19970901
  7. TENORMIN [Concomitant]
     Dosage: UNKNOWN
     Route: 048
     Dates: start: 19970901
  8. AVAPRO [Concomitant]
     Dosage: UNKNOWN
     Route: 048
     Dates: start: 20021202
  9. PANADOL [Concomitant]
     Dosage: UNKNOWN
     Route: 065
     Dates: start: 20030613
  10. KEPPRA [Concomitant]
     Dosage: 500 MG
     Route: 065
     Dates: start: 20041119
  11. NEXIUM [Concomitant]
     Dosage: UNKNOWN
     Route: 048
     Dates: start: 20050907
  12. GLYCERYL TRINITRATE [Concomitant]
     Dosage: UNKNOWN
     Route: 062
     Dates: start: 20061108

REACTIONS (1)
  - CONFUSIONAL STATE [None]
